FAERS Safety Report 7814557-1 (Version None)
Quarter: 2011Q4

REPORT INFORMATION
  Report Type: 
  Country: None (occurrence: None)
  Receive Date: 20111014
  Receipt Date: 20111005
  Transmission Date: 20120403
  Serious: Yes (Hospitalization)
  Sender: FDA-Public Use
  Company Number: FR-MPIJNJ-2011-03184

PATIENT

DRUGS (8)
  1. LYTOS [Concomitant]
     Dosage: 520 MG, UNK
     Route: 048
     Dates: start: 20110620
  2. BACTRIM [Concomitant]
     Dosage: 1 G, UNK
     Route: 048
     Dates: start: 20110712
  3. REVLIMID [Suspect]
     Indication: MULTIPLE MYELOMA
     Dosage: 25 MG, CYCLIC
     Route: 065
     Dates: start: 20110712, end: 20110721
  4. LEDERFOLIN                         /00566702/ [Concomitant]
     Dosage: 15 MG, UNK
     Route: 048
     Dates: start: 20110712
  5. VELCADE [Suspect]
     Indication: MULTIPLE MYELOMA
     Dosage: 1.3 MG, CYCLIC
     Route: 065
     Dates: start: 20110712, end: 20110719
  6. ZELITREX                           /01269701/ [Concomitant]
     Dosage: 500 MG, UNK
     Route: 048
     Dates: start: 20110712
  7. INNOHEP [Concomitant]
     Dosage: UNK MG, UNK
     Route: 058
     Dates: start: 20110712
  8. DEXAMETHASONE [Suspect]
     Indication: MULTIPLE MYELOMA
     Dosage: 20 MG, CYCLIC
     Route: 065
     Dates: start: 20110712, end: 20110722

REACTIONS (2)
  - BRONCHITIS [None]
  - CHRONIC OBSTRUCTIVE PULMONARY DISEASE [None]
